FAERS Safety Report 14720037 (Version 1)
Quarter: 2018Q2

REPORT INFORMATION
  Report Type: Spontaneous
  Country: CN (occurrence: CN)
  Receive Date: 20180405
  Receipt Date: 20180405
  Transmission Date: 20180711
  Serious: Yes (Other)
  Sender: FDA-Public Use
  Company Number: CN-ASTRAZENECA-2018SE42924

PATIENT
  Age: 19724 Day
  Sex: Female

DRUGS (1)
  1. ESOMEPRAZOLE SODIUM. [Suspect]
     Active Substance: ESOMEPRAZOLE SODIUM
     Indication: GASTROINTESTINAL MUCOSAL DISORDER
     Route: 041
     Dates: start: 20180120, end: 20180202

REACTIONS (2)
  - Chills [Recovered/Resolved]
  - Tachypnoea [Recovered/Resolved]

NARRATIVE: CASE EVENT DATE: 20180202
